FAERS Safety Report 6764779-6 (Version None)
Quarter: 2010Q2

REPORT INFORMATION
  Report Type: 
  Country: None (occurrence: None)
  Receive Date: 20100610
  Receipt Date: 20100602
  Transmission Date: 20101027
  Serious: Yes (Hospitalization)
  Sender: FDA-Public Use
  Company Number: CA-PFIZER INC-2010070078

PATIENT
  Age: 72 Year
  Sex: Female

DRUGS (6)
  1. LIPITOR [Suspect]
     Dosage: 20 MG, 1X/DAY
     Route: 048
  2. NOVOQUININE [Suspect]
     Dosage: 200 MG, AS NEEDED
  3. ACETYLSALICYLIC ACID [Concomitant]
     Dosage: UNK
  4. LEVOTHYROXINE [Concomitant]
     Dosage: UNK
  5. OXYBUTYNIN [Concomitant]
     Dosage: UNK
  6. RABEPRAZOLE [Concomitant]
     Dosage: UNK

REACTIONS (3)
  - DRUG INTERACTION [None]
  - EPISTAXIS [None]
  - PLATELET COUNT DECREASED [None]
